FAERS Safety Report 4271870-5 (Version None)
Quarter: 2004Q1

REPORT INFORMATION
  Report Type: 
  Country: None (occurrence: None)
  Receive Date: 20040113
  Receipt Date: 20040105
  Transmission Date: 20041129
  Serious: Yes (Hospitalization)
  Sender: FDA-Public Use
  Company Number: 200410016GDS

PATIENT
  Age: 74 Year
  Sex: Female
  Weight: 42 kg

DRUGS (7)
  1. CIPROFLOXACIN [Suspect]
     Indication: URINARY TRACT INFECTION
     Dosage: 500 MG, BID, ORAL
     Route: 048
     Dates: start: 20031113, end: 20031118
  2. NITROFURANTOIN [Suspect]
     Indication: URINARY TRACT INFECTION
     Dosage: 100 MG, TID, ORAL
     Route: 048
     Dates: start: 20031024, end: 20031102
  3. TRAMADOL [Concomitant]
  4. ISOSORBIDE DINITRATE [Concomitant]
  5. ACETAMINOPHEN [Concomitant]
  6. ASPIRIN [Concomitant]
  7. FEXOFENADINE [Concomitant]

REACTIONS (3)
  - CONJUNCTIVITIS [None]
  - RASH PUSTULAR [None]
  - TOXIC SKIN ERUPTION [None]
